FAERS Safety Report 7959928-8 (Version None)
Quarter: 2011Q4

REPORT INFORMATION
  Report Type: 
  Country: None (occurrence: None)
  Receive Date: 20111206
  Receipt Date: 20111129
  Transmission Date: 20120403
  Serious: Yes (Hospitalization)
  Sender: FDA-Public Use
  Company Number: US-MERCK-1107USA01262

PATIENT
  Age: 76 Year
  Sex: Female

DRUGS (4)
  1. FOSAMAX [Suspect]
     Route: 048
  2. FOSAMAX [Suspect]
     Route: 048
     Dates: start: 19990727
  3. ALENDRONATE SODIUM [Suspect]
     Indication: OSTEOPENIA
     Route: 048
     Dates: start: 20080701, end: 20090601
  4. FOSAMAX [Suspect]
     Indication: OSTEOPENIA
     Route: 048
     Dates: start: 19950101, end: 20080601

REACTIONS (24)
  - ANAEMIA POSTOPERATIVE [None]
  - WRIST FRACTURE [None]
  - LIPIDS INCREASED [None]
  - OSTEOARTHRITIS [None]
  - BREAST PAIN [None]
  - BLOOD CHOLESTEROL INCREASED [None]
  - BACK PAIN [None]
  - OSTEOPOROSIS [None]
  - MENISCUS LESION [None]
  - INTERVERTEBRAL DISC DEGENERATION [None]
  - TOOTH DISORDER [None]
  - COLONIC POLYP [None]
  - FEMUR FRACTURE [None]
  - INTESTINAL ISCHAEMIA [None]
  - CHEST PAIN [None]
  - INNER EAR DISORDER [None]
  - SMALL INTESTINAL OBSTRUCTION [None]
  - CALCIUM DEFICIENCY [None]
  - VITAMIN D DEFICIENCY [None]
  - ABDOMINAL PAIN UPPER [None]
  - MUSCULOSKELETAL CHEST PAIN [None]
  - SINUS BRADYCARDIA [None]
  - ARTHROPATHY [None]
  - FALL [None]
